FAERS Safety Report 6523074-0 (Version None)
Quarter: 2009Q4

REPORT INFORMATION
  Report Type: 
  Country: None (occurrence: None)
  Receive Date: 20091222
  Receipt Date: 20091210
  Transmission Date: 20100525
  Serious: Yes (Disabling, Other)
  Sender: FDA-Public Use
  Company Number: 2009AL007731

PATIENT
  Sex: Male

DRUGS (1)
  1. METOCLOPRAMIDE [Suspect]
     Dates: start: 20000101, end: 20080801

REACTIONS (10)
  - ANHEDONIA [None]
  - ECONOMIC PROBLEM [None]
  - EMOTIONAL DISTRESS [None]
  - EXTRAPYRAMIDAL DISORDER [None]
  - MENTAL DISORDER [None]
  - MOTOR DYSFUNCTION [None]
  - MOVEMENT DISORDER [None]
  - NERVOUS SYSTEM DISORDER [None]
  - PAIN [None]
  - TARDIVE DYSKINESIA [None]
